FAERS Safety Report 5775731-1 (Version None)
Quarter: 2008Q2

REPORT INFORMATION
  Report Type: 
  Country: None (occurrence: None)
  Receive Date: 20080617
  Receipt Date: 20080605
  Transmission Date: 20081010
  Serious: Yes (Other)
  Sender: FDA-Public Use
  Company Number: US-PFIZER INC-2008009611

PATIENT
  Sex: Female
  Weight: 95.454 kg

DRUGS (6)
  1. CHANTIX [Suspect]
     Indication: SMOKING CESSATION THERAPY
  2. PRILOSEC [Concomitant]
  3. FUROSEMIDE [Concomitant]
  4. VALIUM [Concomitant]
  5. ALL OTHER THERAPEUTIC PRODUCTS [Concomitant]
  6. LEXAPRO [Concomitant]
     Indication: DEPRESSION

REACTIONS (7)
  - AGITATION [None]
  - BACK PAIN [None]
  - DEPRESSION [None]
  - DYSPHAGIA [None]
  - NAUSEA [None]
  - NIGHTMARE [None]
  - VOMITING PROJECTILE [None]
